FAERS Safety Report 8207123-X (Version None)
Quarter: 2012Q1

REPORT INFORMATION
  Report Type: 
  Country: None (occurrence: None)
  Receive Date: 20120314
  Receipt Date: 20120308
  Transmission Date: 20120608
  Serious: No
  Sender: FDA-Public Use
  Company Number: US-PFIZER INC-2012063066

PATIENT
  Sex: Female

DRUGS (3)
  1. LATANOPROST [Suspect]
     Indication: GLAUCOMA
     Dosage: 2 GTT IN BOTH EYES, DAILY
     Route: 047
  2. LATANOPROST [Suspect]
     Dosage: STOPPED TAKING IT IN RIGHT EYE
     Route: 047
  3. SYNTHROID [Concomitant]
     Indication: THYROIDECTOMY
     Dosage: 0.075 MG, 1X/DAY

REACTIONS (1)
  - SKIN DISCOLOURATION [None]
